FAERS Safety Report 7818521-8 (Version None)
Quarter: 2011Q4

REPORT INFORMATION
  Report Type: 
  Country: None (occurrence: None)
  Receive Date: 20111017
  Receipt Date: 20111013
  Transmission Date: 20120403
  Serious: Yes (Hospitalization)
  Sender: FDA-Public Use
  Company Number: FR-MERCK-1012FRA00141

PATIENT
  Age: 50 Year
  Sex: Male
  Weight: 68 kg

DRUGS (4)
  1. JANUMET [Concomitant]
     Indication: TYPE 2 DIABETES MELLITUS
     Route: 048
     Dates: start: 20101109, end: 20110101
  2. METFORMIN [Concomitant]
     Indication: DIABETES MELLITUS
     Route: 048
     Dates: start: 20030101, end: 20101108
  3. JANUVIA [Suspect]
     Indication: DIABETES MELLITUS
     Route: 048
     Dates: start: 20100830, end: 20101108
  4. JANUVIA [Suspect]
     Route: 048
     Dates: start: 20110101

REACTIONS (1)
  - OCCULT BLOOD POSITIVE [None]
